FAERS Safety Report 4963856-X (Version None)
Quarter: 2006Q1

REPORT INFORMATION
  Report Type: 
  Country: None (occurrence: None)
  Receive Date: 20060330
  Receipt Date: 20060314
  Transmission Date: 20060701
  Serious: Yes (Hospitalization)
  Sender: FDA-Public Use
  Company Number: DE200601003803

PATIENT
  Sex: Male

DRUGS (4)
  1. STRATTERA [Suspect]
     Dosage: ORAL
     Route: 048
  2. CYNT (MOXONIDINE) TABLET [Concomitant]
  3. ATACAND /SWE/ (CANDESARTAN CILEXETIL) [Concomitant]
  4. DILATREND /GFR/ (CARVEDILOL) [Concomitant]

REACTIONS (2)
  - MUSCULAR WEAKNESS [None]
  - NEUROPATHY [None]
